FAERS Safety Report 22651166 (Version 1)
Quarter: 2023Q2

REPORT INFORMATION
  Report Type: Spontaneous
  Country: US (occurrence: None)
  Receive Date: 20230627
  Receipt Date: 20230627
  Transmission Date: 20230722
  Serious: Yes (Hospitalization)
  Sender: FDA-Public Use
  Company Number: None

PATIENT
  Sex: Male

DRUGS (2)
  1. MYCOPHENOLIC ACID [Suspect]
     Active Substance: MYCOPHENOLIC ACID
     Indication: Renal transplant
     Dosage: 750MG TWICE DAILY BY MOUTH?
     Route: 048
     Dates: start: 202108
  2. TACROLIMUS [Concomitant]
     Active Substance: TACROLIMUS
     Dosage: 2MG 2 TIMES A DAY BY MOUTH
     Route: 048
     Dates: start: 202108

REACTIONS (1)
  - Diarrhoea [None]
